FAERS Safety Report 20721226 (Version 2)
Quarter: 2022Q2

REPORT INFORMATION
  Report Type: Spontaneous
  Country: AU (occurrence: AU)
  Receive Date: 20220418
  Receipt Date: 20220511
  Transmission Date: 20220721
  Serious: Yes (Other)
  Sender: FDA-Public Use
  Company Number: AU-BoehringerIngelheim-2022-BI-164210

PATIENT
  Age: 80 Year
  Sex: Male
  Weight: 183 kg

DRUGS (36)
  1. HYDROCHLOROTHIAZIDE\TELMISARTAN [Suspect]
     Active Substance: HYDROCHLOROTHIAZIDE\TELMISARTAN
     Indication: Hypertension
     Dosage: 80/25 MG STRENGTH. ONE TABLET IN THE MORNING
     Dates: start: 20111006
  2. HYDROCHLOROTHIAZIDE\TELMISARTAN [Suspect]
     Active Substance: HYDROCHLOROTHIAZIDE\TELMISARTAN
     Dosage: 80/12.5MG STRENGTH
  3. HYDROCHLOROTHIAZIDE\TELMISARTAN [Suspect]
     Active Substance: HYDROCHLOROTHIAZIDE\TELMISARTAN
     Dosage: 80/25MG DOSAGE
     Dates: start: 20220216
  4. MICARDIS [Suspect]
     Active Substance: TELMISARTAN
     Indication: Hypertension
     Dosage: AT NIGHT
  5. OLODATEROL HYDROCHLORIDE\TIOTROPIUM BROMIDE MONOHYDRATE [Concomitant]
     Active Substance: OLODATEROL HYDROCHLORIDE\TIOTROPIUM BROMIDE MONOHYDRATE
     Dosage: 2.5MCG/2.5MCG 1 INHALATION DAILY
  6. ALLOPURINOL [Concomitant]
     Active Substance: ALLOPURINOL
     Indication: Product used for unknown indication
  7. METFORMIN [Concomitant]
     Active Substance: METFORMIN HYDROCHLORIDE
     Indication: Product used for unknown indication
     Dosage: 1 TABLET DAILY WITH MEALS
  8. METOPROLOL [Concomitant]
     Active Substance: METOPROLOL
     Indication: Product used for unknown indication
     Dosage: HALF A TABLET IN THE MORNING AND ONE TABLET AT NIGHT
  9. VITAMIN D [Concomitant]
     Active Substance: VITAMIN D NOS
     Indication: Product used for unknown indication
  10. VITAMINS [Concomitant]
     Active Substance: VITAMINS
     Indication: Product used for unknown indication
     Dosage: 1 TABLET DAILY
  11. CARTIA [Concomitant]
     Indication: Product used for unknown indication
  12. MAGNESIUM [Concomitant]
     Active Substance: MAGNESIUM
     Indication: Product used for unknown indication
  13. BREO ELLIPTA [Concomitant]
     Active Substance: FLUTICASONE FUROATE\VILANTEROL TRIFENATATE
     Dosage: 200/25 MICROGRAM ONE DOSE DAILY
     Route: 055
  14. NEXIUM [Concomitant]
     Active Substance: ESOMEPRAZOLE MAGNESIUM
  15. PROLIA [Concomitant]
     Active Substance: DENOSUMAB
     Dosage: 60MG/ML STRENGTH
     Route: 058
  16. QVAR [Concomitant]
     Active Substance: BECLOMETHASONE DIPROPIONATE
  17. SOLICARE [Concomitant]
     Dosage: 1 TABLET IN THE EVENING
  18. TAZAC [Concomitant]
  19. FLUVAX [Concomitant]
     Active Substance: INFLUENZA VIRUS VACCINE
     Dates: start: 20120417
  20. FLUVAX [Concomitant]
     Active Substance: INFLUENZA VIRUS VACCINE
     Dates: start: 20130328
  21. FLUVAX [Concomitant]
     Active Substance: INFLUENZA VIRUS VACCINE
     Dates: start: 20140303
  22. FLUVAX [Concomitant]
     Active Substance: INFLUENZA VIRUS VACCINE
     Dates: start: 20150410
  23. FLUARIX TETRA [Concomitant]
     Active Substance: INFLUENZA VIRUS VACCINE
     Dates: start: 20160412
  24. ZOSTAVAX [Concomitant]
     Active Substance: VARICELLA-ZOSTER VIRUS STRAIN OKA/MERCK LIVE ANTIGEN
     Dates: start: 20161117
  25. BOOSTRIX [Concomitant]
     Active Substance: TETANUS TOXOID, REDUCED DIPHTHERIA TOXOID AND ACELLULAR PERTUSSIS VACCINE, ADSORBED ANTIGENS
     Dates: start: 20161229
  26. BOOSTRIX [Concomitant]
     Active Substance: TETANUS TOXOID, REDUCED DIPHTHERIA TOXOID AND ACELLULAR PERTUSSIS VACCINE, ADSORBED ANTIGENS
     Dates: start: 20220214
  27. FLUARIX TETRA [Concomitant]
     Active Substance: INFLUENZA VIRUS VACCINE
     Dates: start: 20180507
  28. FLUAD NOS [Concomitant]
     Active Substance: INFLUENZA VIRUS VACCINE
     Dates: start: 20190503
  29. FLUAD QUAD [Concomitant]
     Dates: start: 20200511
  30. FLUAD QUAD [Concomitant]
     Dates: start: 20210514
  31. ASTRAZENECA COVID-19 VACCINE [Concomitant]
     Active Substance: AZD-1222
     Dates: start: 20210420
  32. ASTRAZENECA COVID-19 VACCINE [Concomitant]
     Active Substance: AZD-1222
     Dates: start: 20210713
  33. COMIRNATY [Concomitant]
     Active Substance: TOZINAMERAN
     Dates: start: 20220118
  34. PRIORIX [Concomitant]
     Active Substance: MEASLES-MUMPS-RUBELLA VIRUS VACCINE
     Dates: start: 20220214
  35. PREVENAR [Concomitant]
     Active Substance: PNEUMOCOCCAL 7-VALENT CONJUGATE VACCINE (DIPHTHERIA CRM197 PROTEIN)
     Dates: start: 20220214
  36. PERTUSSIS VACCINE [Concomitant]
     Active Substance: PERTUSSIS VACCINE
     Dates: start: 20220211

REACTIONS (3)
  - Sjogren^s syndrome [Not Recovered/Not Resolved]
  - Blood pressure abnormal [Not Recovered/Not Resolved]
  - Nocturia [Unknown]
